FAERS Safety Report 8615609-9 (Version None)
Quarter: 2012Q3

REPORT INFORMATION
  Report Type: 
  Country: None (occurrence: None)
  Receive Date: 20120823
  Receipt Date: 20120813
  Transmission Date: 20120928
  Serious: Yes (Hospitalization, Other)
  Sender: FDA-Public Use
  Company Number: DE-ELI_LILLY_AND_COMPANY-DE201208004018

PATIENT
  Sex: Female

DRUGS (6)
  1. FALITHROM [Concomitant]
  2. VITAMIN D [Concomitant]
  3. IBUPROFEN [Concomitant]
  4. CALCIUM [Concomitant]
  5. NITROLINGUAL [Concomitant]
  6. FORTEO [Suspect]
     Indication: OSTEOPOROSIS
     Dosage: UNK UNK, QD
     Route: 058
     Dates: start: 20110824

REACTIONS (2)
  - ABDOMINAL OPERATION [None]
  - TUMOUR MARKER INCREASED [None]
